FAERS Safety Report 5123566-5 (Version None)
Quarter: 2006Q4

REPORT INFORMATION
  Report Type: 
  Country: None (occurrence: None)
  Receive Date: 20061005
  Receipt Date: 20060925
  Transmission Date: 20070319
  Serious: Yes (Life-Threatening, Other)
  Sender: FDA-Public Use
  Company Number: 2006110987

PATIENT
  Age: 39 Year
  Sex: Female

DRUGS (6)
  1. ZOLOFT [Suspect]
     Indication: DEPRESSION
     Dosage: 25 MG (DAILY), ORAL
     Route: 048
     Dates: start: 20060820, end: 20060829
  2. PAXIL [Suspect]
     Indication: DEPRESSION
     Dosage: 10 MG (DAILY), ORAL
     Route: 048
     Dates: start: 20060426
  3. RIZE (CLOTIAZEPAM) [Concomitant]
  4. DEPAS (ETIZOLAM) [Concomitant]
  5. ALPRAZOLAM [Concomitant]
  6. DOGMATYL (SULPIRIDE) [Concomitant]

REACTIONS (9)
  - ANOREXIA [None]
  - FATIGUE [None]
  - FEELING ABNORMAL [None]
  - HEADACHE [None]
  - HYPERPROLACTINAEMIA [None]
  - LISTLESS [None]
  - PSYCHIATRIC SYMPTOM [None]
  - SENSE OF OPPRESSION [None]
  - SUICIDAL IDEATION [None]
